FAERS Safety Report 6220489 (Version 2)
Quarter: 2025Q2

REPORT INFORMATION
  Report Type: Spontaneous
  Country: ES (occurrence: ES)
  Receive Date: 20070123
  Receipt Date: 20250625
  Transmission Date: 20250716
  Serious: Yes (Death)
  Sender: NOVARTIS
  Company Number: None

PATIENT
  Age: 25 Year
  Sex: Male

DRUGS (9)
  1. CYCLOSPORINE [Suspect]
     Active Substance: CYCLOSPORINE
     Indication: Cord blood transplant therapy
     Route: 065
     Dates: start: 2005
  2. CYCLOSPORINE [Suspect]
     Active Substance: CYCLOSPORINE
     Indication: Prophylaxis against transplant rejection
  3. PREDNISONE [Suspect]
     Active Substance: PREDNISONE
     Indication: Cord blood transplant therapy
     Route: 065
  4. PREDNISONE [Suspect]
     Active Substance: PREDNISONE
     Indication: Prophylaxis against transplant rejection
  5. FLUDARABINE [Suspect]
     Active Substance: FLUDARABINE PHOSPHATE
     Indication: Cord blood transplant therapy
     Dosage: 30 MG/M2, QD
     Route: 065
     Dates: start: 200505
  6. FLUDARABINE [Suspect]
     Active Substance: FLUDARABINE PHOSPHATE
     Indication: Acute myeloid leukaemia
  7. CYCLOPHOSPHAMIDE [Suspect]
     Active Substance: CYCLOPHOSPHAMIDE
     Indication: Cord blood transplant therapy
     Dosage: 60 MG/KG, QD
     Route: 065
     Dates: start: 200505
  8. CYCLOPHOSPHAMIDE [Suspect]
     Active Substance: CYCLOPHOSPHAMIDE
     Indication: Acute myeloid leukaemia
  9. LAPINE T-LYMPHOCYTE IMMUNE GLOBULIN [Concomitant]
     Active Substance: LAPINE T-LYMPHOCYTE IMMUNE GLOBULIN
     Indication: Cord blood transplant therapy
     Dosage: 30 MG/KG, QD
     Route: 065

REACTIONS (6)
  - American trypanosomiasis [Fatal]
  - Multiple organ dysfunction syndrome [Fatal]
  - Myocarditis [Fatal]
  - Encephalitis protozoal [Fatal]
  - Pyrexia [Fatal]
  - Mental disorder [Fatal]

NARRATIVE: CASE EVENT DATE: 20050501
